FAERS Safety Report 9016113 (Version 1)
Quarter: 2013Q1

REPORT INFORMATION
  Report Type: Spontaneous
  Country: US (occurrence: US)
  Receive Date: 20130116
  Receipt Date: 20130116
  Transmission Date: 20140127
  Serious: Yes (Other)
  Sender: FDA-Public Use
  Company Number: US-PFIZER INC-2013018408

PATIENT
  Age: 41 Year
  Sex: Female
  Weight: 81.63 kg

DRUGS (7)
  1. CORTEF [Suspect]
     Indication: HORMONE REPLACEMENT THERAPY
     Dosage: 10MG IN THE MORNING, HALF TABLET OF 10MG IN THE AFTERNOON, AND HALF TABLET OF 10MG AT NIGHT
     Route: 048
  2. CORTEF [Suspect]
     Indication: ADRENAL INSUFFICIENCY
  3. VERAPAMIL HCL [Suspect]
     Indication: HYPERTENSION
     Dosage: 240 MG, 2X/DAY
  4. SYNTHROID [Concomitant]
     Indication: HYPOTHYROIDISM
     Dosage: 75 UG, DAILY
  5. SIMVASTATIN [Concomitant]
     Indication: BLOOD CHOLESTEROL INCREASED
     Dosage: UNK
  6. HYDROCHLOROTHIAZIDE WITH TRIAMTERENE [Concomitant]
     Indication: DIURETIC THERAPY
     Dosage: UNK
  7. POTASSIUM CHLORIDE [Concomitant]
     Indication: BLOOD POTASSIUM DECREASED
     Dosage: UNK

REACTIONS (3)
  - Cerebrovascular accident [Unknown]
  - Artery dissection [Unknown]
  - Thrombosis [Unknown]
